FAERS Safety Report 14544968 (Version 1)
Quarter: 2018Q1

REPORT INFORMATION
  Report Type: Spontaneous
  Country: US (occurrence: US)
  Receive Date: 20180216
  Receipt Date: 20180216
  Transmission Date: 20180509
  Serious: Yes (Hospitalization)
  Sender: FDA-Public Use
  Company Number: None

PATIENT
  Age: 47 Year
  Sex: Female
  Weight: 74 kg

DRUGS (3)
  1. DOXYCYCLINE. [Concomitant]
     Active Substance: DOXYCYCLINE
     Dates: start: 20180205
  2. KEFLEX [Concomitant]
     Active Substance: CEPHALEXIN
     Dates: start: 20180205, end: 20180210
  3. XARELTO [Suspect]
     Active Substance: RIVAROXABAN
     Indication: DEVICE RELATED THROMBOSIS
     Dates: start: 20180205, end: 20180212

REACTIONS (5)
  - Secretion discharge [None]
  - Skin exfoliation [None]
  - Eye irritation [None]
  - Rash [None]
  - Stomatitis [None]

NARRATIVE: CASE EVENT DATE: 20180212
